FAERS Safety Report 8369158-6 (Version None)
Quarter: 2012Q2

REPORT INFORMATION
  Report Type: 
  Country: None (occurrence: None)
  Receive Date: 20120518
  Receipt Date: 20120511
  Transmission Date: 20120825
  Serious: Yes (Other)
  Sender: FDA-Public Use
  Company Number: US-BAYER-2012-029605

PATIENT
  Age: 81 Year
  Sex: Female

DRUGS (9)
  1. REGLAN [Concomitant]
  2. NEXAVAR [Suspect]
     Indication: HEPATIC NEOPLASM MALIGNANT
     Dosage: 200 MG, BID
     Dates: start: 20120314, end: 20120420
  3. CARDIA [Concomitant]
     Dosage: 180 MG, UNK
     Route: 048
  4. DABIGATRAN [Concomitant]
     Dosage: 150 MG, BID
     Route: 048
     Dates: start: 20120309, end: 20120322
  5. CARAFATE [Concomitant]
  6. THYROID MEDICATION [Concomitant]
  7. XARELTO [Concomitant]
     Dosage: 20 MG, QD
     Route: 048
  8. DABIGATRAN [Concomitant]
     Dosage: UNK
     Dates: start: 20120323
  9. PROTONIX [Concomitant]
     Indication: ABDOMINAL PAIN UPPER

REACTIONS (9)
  - BLOOD GLUCOSE DECREASED [None]
  - FALL [None]
  - ARTHRALGIA [None]
  - BLOOD POTASSIUM DECREASED [None]
  - APHAGIA [None]
  - NAUSEA [None]
  - DECREASED APPETITE [None]
  - SPINAL COMPRESSION FRACTURE [None]
  - MUSCLE SPASMS [None]
